FAERS Safety Report 25201709 (Version 4)
Quarter: 2025Q2

REPORT INFORMATION
  Report Type: Report from Study
  Country: US (occurrence: US)
  Receive Date: 20250416
  Receipt Date: 20250612
  Transmission Date: 20250717
  Serious: No
  Sender: SUNOVION
  Company Number: US-SMPA-2025SPA003469AA

PATIENT

DRUGS (10)
  1. ORGOVYX [Suspect]
     Active Substance: RELUGOLIX
     Indication: Prostate cancer
     Dosage: 120 MG, QD
     Route: 048
     Dates: start: 202503
  2. AMLODIPINE BESYLATE [Concomitant]
     Active Substance: AMLODIPINE BESYLATE
     Route: 065
  3. CIALIS [Concomitant]
     Active Substance: TADALAFIL
     Route: 065
  4. VITAMIN C [Concomitant]
     Active Substance: ASCORBIC ACID
     Route: 065
  5. VITAMINS [Concomitant]
     Active Substance: VITAMINS
     Route: 065
  6. OMEPRAZOLE [Concomitant]
     Active Substance: OMEPRAZOLE
     Route: 065
  7. SILDENAFIL CITRATE [Concomitant]
     Active Substance: SILDENAFIL CITRATE
     Route: 065
  8. SINGULAIR [Concomitant]
     Active Substance: MONTELUKAST SODIUM
     Route: 065
  9. TAMSULOSIN [Concomitant]
     Active Substance: TAMSULOSIN
     Route: 065
  10. VITAMIN D3 [Concomitant]
     Active Substance: CHOLECALCIFEROL
     Route: 065

REACTIONS (6)
  - Dry skin [Unknown]
  - Sexual dysfunction [Unknown]
  - Night sweats [Unknown]
  - Hot flush [Unknown]
  - Fatigue [Unknown]
  - Incorrect dose administered [Unknown]
